FAERS Safety Report 4975918-1 (Version None)
Quarter: 2006Q2

REPORT INFORMATION
  Report Type: 
  Country: None (occurrence: None)
  Receive Date: 20060404
  Receipt Date: 20060323
  Transmission Date: 20061013
  Serious: Yes (Other)
  Sender: FDA-Public Use
  Company Number: 2006BH006530

PATIENT
  Age: 71 Year
  Sex: Male

DRUGS (5)
  1. HUMAN ALBUMIN IMMUNO 5% (ALBUMIN HUMAN) [Suspect]
     Indication: CHRONIC LYMPHOCYTIC LEUKAEMIA
     Dosage: IV
     Route: 042
     Dates: start: 20050513, end: 20050602
  2. HUMAN ALBUMIN IMMUNO 5% (ALBUMIN HUMAN) [Suspect]
     Indication: HAEMOLYSIS
     Dosage: IV
     Route: 042
     Dates: start: 20050513, end: 20050602
  3. IMMUNE GLOBULIN INTRAVENOUS (HUMAN) [Suspect]
     Indication: CHRONIC LYMPHOCYTIC LEUKAEMIA
     Dates: start: 20050513, end: 20050602
  4. DIPYRIDAMOLE [Suspect]
     Indication: DRUG USE FOR UNKNOWN INDICATION
     Dosage: 4 PACK
     Dates: start: 20031101, end: 20051101
  5. RED BLOOD CELLS [Suspect]
     Indication: DRUG USE FOR UNKNOWN INDICATION
     Dosage: 29 PACKS
     Dates: start: 20031101, end: 20051101

REACTIONS (1)
  - HEPATITIS C [None]
